FAERS Safety Report 8889709 (Version 1)
Quarter: 2012Q4

REPORT INFORMATION
  Report Type: Spontaneous
  Country: US (occurrence: None)
  Receive Date: 20121105
  Receipt Date: 20121105
  Transmission Date: 20130627
  Serious: Yes (Other)
  Sender: FDA-Public Use
  Company Number: None

PATIENT
  Age: 72 None
  Sex: Male
  Weight: 72.7 kg

DRUGS (1)
  1. DOXAZOSIN 4MG PFIZER, INC [Suspect]
     Indication: BLOOD PRESSURE HIGH
     Dosage: 4MG TWICE A DAY ORAL
     Route: 048

REACTIONS (3)
  - Pollakiuria [None]
  - Fatigue [None]
  - Libido decreased [None]
